FAERS Safety Report 7832321-4 (Version None)
Quarter: 2011Q4

REPORT INFORMATION
  Report Type: 
  Country: None (occurrence: None)
  Receive Date: 20111022
  Receipt Date: 20111020
  Transmission Date: 20120403
  Serious: Yes (Other)
  Sender: FDA-Public Use
  Company Number: IT-BAYER-2011-101946

PATIENT
  Age: 61 Year
  Sex: Female

DRUGS (4)
  1. CRESTOR [Concomitant]
  2. ACETYLSALICYLIC ACID SRT [Suspect]
     Dosage: DAILY DOSE 1 DF
     Route: 048
     Dates: start: 20100814, end: 20110813
  3. LUCEN [Concomitant]
  4. NEBIVOLOL HCL [Concomitant]
     Route: 048

REACTIONS (1)
  - RECTAL HAEMORRHAGE [None]
